FAERS Safety Report 9647383 (Version 1)
Quarter: 2013Q4

REPORT INFORMATION
  Report Type: Report from Study
  Country: BR (occurrence: BR)
  Receive Date: 20131027
  Receipt Date: 20131027
  Transmission Date: 20140711
  Serious: Yes (Other)
  Sender: FDA-Public Use
  Company Number: PHHY2013BR117921

PATIENT
  Age: 73 Year
  Sex: Female

DRUGS (3)
  1. GALVUS [Suspect]
     Indication: DIABETES MELLITUS
     Dosage: 1 DF (50 MG), DAILY
     Route: 048
  2. METFORMIN [Suspect]
  3. ENALAPRIL [Suspect]

REACTIONS (1)
  - Blood glucose increased [Not Recovered/Not Resolved]
